FAERS Safety Report 19283858 (Version 1)
Quarter: 2021Q2

REPORT INFORMATION
  Report Type: Spontaneous
  Country: GB (occurrence: GB)
  Receive Date: 20210521
  Receipt Date: 20210521
  Transmission Date: 20210717
  Serious: Yes (Other)
  Sender: FDA-Public Use
  Company Number: GB-PFIZER INC-2021522810

PATIENT
  Age: 44 Year
  Sex: Male

DRUGS (1)
  1. LORVIQUA [Suspect]
     Active Substance: LORLATINIB
     Dosage: 100 MG, DAILY

REACTIONS (8)
  - Sinus disorder [Unknown]
  - Head discomfort [Unknown]
  - Swelling face [Unknown]
  - Ear swelling [Unknown]
  - Ear pain [Unknown]
  - Toothache [Unknown]
  - Intracranial pressure increased [Unknown]
  - Eye pain [Unknown]
